FAERS Safety Report 6755720-0 (Version None)
Quarter: 2010Q2

REPORT INFORMATION
  Report Type: 
  Country: None (occurrence: None)
  Receive Date: 20100604
  Receipt Date: 20100521
  Transmission Date: 20101027
  Serious: Yes (Life-Threatening, Hospitalization, Other)
  Sender: FDA-Public Use
  Company Number: US-ELI_LILLY_AND_COMPANY-US201005006078

PATIENT
  Sex: Male

DRUGS (4)
  1. HUMULIN 70/30 [Suspect]
     Indication: DIABETES MELLITUS
     Dosage: 32 U, EACH MORNING
  2. HUMULIN 70/30 [Suspect]
     Dosage: 32 U, EACH EVENING
  3. AVANDIA [Concomitant]
  4. OXYGEN [Concomitant]

REACTIONS (19)
  - ABNORMAL SENSATION IN EYE [None]
  - ACCIDENT [None]
  - APPARENT DEATH [None]
  - BLOOD GLUCOSE ABNORMAL [None]
  - BLOOD GLUCOSE DECREASED [None]
  - BLOOD GLUCOSE INCREASED [None]
  - CARDIAC ARREST [None]
  - CARDIOVASCULAR INSUFFICIENCY [None]
  - DRUG INEFFECTIVE [None]
  - EMPHYSEMA [None]
  - FLUID IMBALANCE [None]
  - HEAD INJURY [None]
  - HYPERTENSION [None]
  - JOINT INJURY [None]
  - LIMB INJURY [None]
  - LOSS OF CONSCIOUSNESS [None]
  - STENT PLACEMENT [None]
  - SURGERY [None]
  - VESSEL PERFORATION [None]
